FAERS Safety Report 14347415 (Version 1)
Quarter: 2017Q4

REPORT INFORMATION
  Report Type: Spontaneous
  Country: US (occurrence: US)
  Receive Date: 20171229
  Receipt Date: 20171229
  Transmission Date: 20180321
  Serious: Yes (Hospitalization)
  Sender: FDA-Public Use
  Company Number: None

PATIENT
  Age: 83 Year
  Sex: Male

DRUGS (1)
  1. APIXABAN [Suspect]
     Active Substance: APIXABAN
     Indication: ATRIAL FIBRILLATION
     Route: 048
     Dates: start: 20170417, end: 20170817

REACTIONS (4)
  - Tachycardia [None]
  - Haematuria [None]
  - Hypotension [None]
  - Somnolence [None]

NARRATIVE: CASE EVENT DATE: 20170817
